FAERS Safety Report 6003138-0 (Version None)
Quarter: 2008Q4

REPORT INFORMATION
  Report Type: 
  Country: None (occurrence: None)
  Receive Date: 20081212
  Receipt Date: 20081212
  Transmission Date: 20090506
  Serious: Yes (Hospitalization)
  Sender: FDA-Public Use
  Company Number: None

PATIENT
  Sex: Female
  Weight: 75 kg

DRUGS (3)
  1. CYTARABINE [Suspect]
     Dosage: 30 G
  2. DAUNORUBICIN [Suspect]
     Dosage: 243 MG
  3. SYNTHROID [Concomitant]

REACTIONS (4)
  - PLATELET COUNT DECREASED [None]
  - SYNCOPE [None]
  - VAGINAL HAEMORRHAGE [None]
  - WHITE BLOOD CELL COUNT DECREASED [None]
